FAERS Safety Report 5384268-3 (Version None)
Quarter: 2007Q3

REPORT INFORMATION
  Report Type: 
  Country: None (occurrence: None)
  Receive Date: 20070711
  Receipt Date: 20070703
  Transmission Date: 20080115
  Serious: Yes (Other)
  Sender: FDA-Public Use
  Company Number: US-ASTRAZENECA-2007UW01081

PATIENT
  Sex: Male

DRUGS (14)
  1. SEROQUEL [Suspect]
     Indication: ANXIETY
     Route: 048
     Dates: start: 20020307, end: 20020508
  2. SEROQUEL [Suspect]
     Indication: OBSESSIVE-COMPULSIVE DISORDER
     Route: 048
     Dates: start: 20020307, end: 20020508
  3. SEROQUEL [Suspect]
     Route: 048
     Dates: start: 20020508, end: 20020619
  4. SEROQUEL [Suspect]
     Route: 048
     Dates: start: 20020508, end: 20020619
  5. SEROQUEL [Suspect]
     Route: 048
     Dates: start: 20021011, end: 20021118
  6. SEROQUEL [Suspect]
     Route: 048
     Dates: start: 20021011, end: 20021118
  7. SEROQUEL [Suspect]
     Route: 048
     Dates: start: 20021118, end: 20030102
  8. SEROQUEL [Suspect]
     Route: 048
     Dates: start: 20021118, end: 20030102
  9. SEROQUEL [Suspect]
     Route: 048
     Dates: start: 20030102, end: 20030707
  10. SEROQUEL [Suspect]
     Route: 048
     Dates: start: 20030102, end: 20030707
  11. RISPERDAL [Suspect]
     Indication: ANXIETY
     Dates: start: 20011102, end: 20020227
  12. RISPERDAL [Suspect]
     Indication: OBSESSIVE-COMPULSIVE DISORDER
     Dates: start: 20011102, end: 20020227
  13. RISPERDAL [Suspect]
     Dates: start: 20020227, end: 20020307
  14. RISPERDAL [Suspect]
     Dates: start: 20020227, end: 20020307

REACTIONS (3)
  - GYNAECOMASTIA [None]
  - TYPE 1 DIABETES MELLITUS [None]
  - WEIGHT INCREASED [None]
